FAERS Safety Report 11509149 (Version 1)
Quarter: 2015Q3

REPORT INFORMATION
  Report Type: Spontaneous
  Country: US (occurrence: US)
  Receive Date: 20150915
  Receipt Date: 20150915
  Transmission Date: 20151125
  Serious: Yes (Hospitalization, Other)
  Sender: FDA-Public Use
  Company Number: US-PFIZER INC-8-99259-006A

PATIENT
  Age: 80 Year
  Sex: Female

DRUGS (15)
  1. LANOXIN [Interacting]
     Active Substance: DIGOXIN
     Dosage: 125 UNK, 2X/DAY
     Route: 048
  2. THEO-24 [Concomitant]
     Active Substance: THEOPHYLLINE ANHYDROUS
  3. XANAX [Concomitant]
     Active Substance: ALPRAZOLAM
  4. PAXIL [Interacting]
     Active Substance: PAROXETINE HYDROCHLORIDE
  5. BABY ASPIRIN [Concomitant]
     Active Substance: ASPIRIN
  6. PREMARIN [Suspect]
     Active Substance: ESTROGENS, CONJUGATED
     Dosage: /DAY
     Route: 048
  7. LEVOXYL [Concomitant]
     Active Substance: LEVOTHYROXINE SODIUM
  8. XANAX [Interacting]
     Active Substance: ALPRAZOLAM
     Indication: ANXIETY
     Dosage: /DAY
  9. NIACIN. [Interacting]
     Active Substance: NIACIN
     Dosage: /DAY
  10. ACETYLSALICYLIC ACID [Interacting]
     Active Substance: ASPIRIN
     Dosage: /DAY
  11. ATORVASTATIN [Interacting]
     Active Substance: ATORVASTATIN
     Indication: HYPERCHOLESTEROLAEMIA
     Dosage: /DAY
  12. THEO-24 [Interacting]
     Active Substance: THEOPHYLLINE ANHYDROUS
     Indication: ASTHMA
     Dosage: /DAY
     Route: 065
  13. LEVOTHYROXINE. [Interacting]
     Active Substance: LEVOTHYROXINE
     Indication: THYROID DISORDER
     Dosage: /DAY
     Route: 065
  14. LANOXIN DIGOXIN [Concomitant]
     Route: 048
  15. NIACIN. [Concomitant]
     Active Substance: NIACIN

REACTIONS (11)
  - Skin disorder [Unknown]
  - Insomnia [Unknown]
  - Skin cancer [Unknown]
  - Alopecia [Unknown]
  - Dermatitis [Unknown]
  - Paraesthesia [Unknown]
  - Breast pain [Unknown]
  - Breast mass [Unknown]
  - Seizure [Unknown]
  - Myalgia [Unknown]
  - Drug interaction [Unknown]
